FAERS Safety Report 5967474-6 (Version None)
Quarter: 2008Q4

REPORT INFORMATION
  Report Type: 
  Country: None (occurrence: None)
  Receive Date: 20081125
  Receipt Date: 20081117
  Transmission Date: 20090506
  Serious: Yes (Other)
  Sender: FDA-Public Use
  Company Number: BR-PFIZER INC-2008010272

PATIENT
  Age: 65 Year
  Sex: Female
  Weight: 74 kg

DRUGS (7)
  1. LIPITOR [Suspect]
     Indication: BLOOD CHOLESTEROL INCREASED
     Route: 048
     Dates: start: 20070101
  2. SIMVASTATIN [Suspect]
     Route: 048
  3. GALVUS [Suspect]
     Indication: DIABETES MELLITUS
  4. RIVOTRIL [Concomitant]
     Dates: start: 20080901
  5. BENERVA [Concomitant]
     Dates: start: 20070101
  6. INSULIN [Concomitant]
  7. DRUG, UNSPECIFIED [Concomitant]
     Route: 048

REACTIONS (4)
  - DIZZINESS [None]
  - HYPERSENSITIVITY [None]
  - RASH [None]
  - THROAT TIGHTNESS [None]
